FAERS Safety Report 4885917-6 (Version None)
Quarter: 2006Q1

REPORT INFORMATION
  Report Type: 
  Country: None (occurrence: None)
  Receive Date: 20060120
  Receipt Date: 20051128
  Transmission Date: 20060701
  Serious: Yes (Hospitalization)
  Sender: FDA-Public Use
  Company Number: GB-ROCHE-426583

PATIENT
  Age: 51 Year
  Sex: Female

DRUGS (2)
  1. CAPECITABINE [Suspect]
     Indication: RECTAL CANCER
     Route: 048
     Dates: start: 20050926, end: 20051020
  2. IRINOTECAN HCL [Suspect]
     Indication: RECTAL CANCER
     Dosage: AS PER PROTOCOL FOR 4 INFUSIONS
     Route: 042

REACTIONS (6)
  - ANOREXIA [None]
  - BLOOD ALBUMIN DECREASED [None]
  - DECREASED APPETITE [None]
  - LETHARGY [None]
  - MALNUTRITION [None]
  - SMALL INTESTINAL PERFORATION [None]
